FAERS Safety Report 14028362 (Version 3)
Quarter: 2017Q4

REPORT INFORMATION
  Report Type: Report from Study
  Country: BR (occurrence: BR)
  Receive Date: 20170930
  Receipt Date: 20171030
  Transmission Date: 20180321
  Serious: Yes (Hospitalization, Other)
  Sender: FDA-Public Use
  Company Number: BR-AMGEN-BRANI2017146488

PATIENT
  Age: 8 Year
  Sex: Female

DRUGS (4)
  1. BLINATUMOMAB [Suspect]
     Active Substance: BLINATUMOMAB
     Indication: PRODUCT USED FOR UNKNOWN INDICATION
     Dosage: 5 MUG, QD
     Route: 042
     Dates: start: 20170912, end: 20170922
  2. POSACONAZOLE [Suspect]
     Active Substance: POSACONAZOLE
     Indication: PRODUCT USED FOR UNKNOWN INDICATION
     Dosage: 40 MG/ML, TID
     Route: 048
     Dates: start: 20170906, end: 20170926
  3. BLINATUMOMAB [Suspect]
     Active Substance: BLINATUMOMAB
     Dosage: UNK
     Route: 042
     Dates: start: 20170926
  4. MICAFUNGIN [Concomitant]
     Active Substance: MICAFUNGIN
     Dosage: 50 MG, QID
     Route: 042
     Dates: start: 20170926

REACTIONS (5)
  - Blood alkaline phosphatase increased [Recovered/Resolved]
  - Leukopenia [Recovering/Resolving]
  - Blood bilirubin increased [Recovered/Resolved]
  - Thrombocytopenia [Recovering/Resolving]
  - Anaemia [Recovering/Resolving]

NARRATIVE: CASE EVENT DATE: 20170914
